FAERS Safety Report 21133512 (Version 1)
Quarter: 2022Q3

REPORT INFORMATION
  Report Type: Report from Study
  Country: ID (occurrence: ID)
  Receive Date: 20220726
  Receipt Date: 20220726
  Transmission Date: 20221026
  Serious: Yes (Life-Threatening, Hospitalization, Other)
  Sender: FDA-Public Use
  Company Number: ID-Accord-268749

PATIENT
  Age: 43 Year
  Sex: Male

DRUGS (1)
  1. ALLOPURINOL [Suspect]
     Active Substance: ALLOPURINOL
     Indication: Gouty arthritis

REACTIONS (3)
  - Stevens-Johnson syndrome [Recovered/Resolved]
  - Renal impairment [Recovered/Resolved]
  - Hepatic enzyme increased [Recovered/Resolved]
